FAERS Safety Report 12309205 (Version 3)
Quarter: 2016Q2

REPORT INFORMATION
  Report Type: Spontaneous
  Country: JP (occurrence: JP)
  Receive Date: 20160427
  Receipt Date: 20160512
  Transmission Date: 20160815
  Serious: Yes (Hospitalization)
  Sender: FDA-Public Use
  Company Number: JP-SA-2016SA082023

PATIENT
  Age: 85 Year
  Sex: Male

DRUGS (1)
  1. BCG FOR IMMUNOTHERAPY [Suspect]
     Active Substance: BACILLUS CALMETTE-GUERIN ANTIGEN, UNSPECIFIED SUBSTRAIN
     Indication: CARCINOMA IN SITU
     Route: 065

REACTIONS (6)
  - Sepsis [Unknown]
  - Pyrexia [Recovered/Resolved]
  - Chills [Unknown]
  - Disseminated intravascular coagulation [Unknown]
  - Pyelonephritis [Unknown]
  - Interstitial lung disease [Unknown]
